FAERS Safety Report 6812150-0 (Version None)
Quarter: 2010Q3

REPORT INFORMATION
  Report Type: 
  Country: None (occurrence: None)
  Receive Date: 20100701
  Receipt Date: 20100701
  Transmission Date: 20110219
  Serious: Yes (Hospitalization, Other)
  Sender: FDA-Public Use
  Company Number: US-ABBOTT-10P-163-0643402-00

PATIENT
  Sex: Male
  Weight: 79.041 kg

DRUGS (31)
  1. HUMIRA [Suspect]
     Indication: RHEUMATOID ARTHRITIS
     Dates: end: 20090101
  2. HUMIRA [Suspect]
     Dates: end: 20100301
  3. HUMIRA [Suspect]
     Route: 058
  4. METHOTREXATE [Concomitant]
     Indication: PRODUCT USED FOR UNKNOWN INDICATION
  5. METHOTREXATE [Concomitant]
  6. MUMPS ANTIGEN [Concomitant]
     Indication: PRODUCT USED FOR UNKNOWN INDICATION
  7. OXYCODONE HCL [Concomitant]
     Indication: PRODUCT USED FOR UNKNOWN INDICATION
  8. ALENDRONATE [Concomitant]
     Indication: PRODUCT USED FOR UNKNOWN INDICATION
     Route: 048
  9. ASPIRIN [Concomitant]
     Indication: PRODUCT USED FOR UNKNOWN INDICATION
     Route: 048
  10. CALCIUM CITRATE/VITAMIN D3 [Concomitant]
     Indication: PRODUCT USED FOR UNKNOWN INDICATION
     Route: 048
  11. CALCIUM CARBONATE [Concomitant]
     Indication: MINERAL SUPPLEMENTATION
     Route: 048
  12. LEUCOVORIN CALCIUM [Concomitant]
     Indication: PRODUCT USED FOR UNKNOWN INDICATION
     Route: 048
  13. ACETAMINOPHEN AND OXYCODONE HCL [Concomitant]
     Indication: PAIN
     Dosage: 325MG-5MG X 1-2 Q 4-6 HOURS
     Route: 048
  14. ACETAMINOPHEN AND OXYCODONE HCL [Concomitant]
     Dosage: 325MG/5MG TID
     Route: 048
  15. PREDNISONE [Concomitant]
     Indication: PROPHYLAXIS
     Dosage: 5MG X 2 QD
     Route: 048
  16. PREDNISONE [Concomitant]
     Indication: ARTHRALGIA
     Dosage: OR AS DIRECTED
     Route: 048
  17. PREDNISONE [Concomitant]
     Indication: RHEUMATOID ARTHRITIS
  18. PREDNISONE [Concomitant]
  19. PREDNISONE [Concomitant]
     Dosage: PLAN TO DECREASED TO 5MG EVERY 4 DAYS
  20. PYRIMETHAMINE TAB [Concomitant]
     Indication: PRODUCT USED FOR UNKNOWN INDICATION
     Route: 048
  21. SULFADIAZINE [Concomitant]
     Indication: PRODUCT USED FOR UNKNOWN INDICATION
     Dosage: 500MG X 4 QID
     Route: 048
  22. FOLIC ACID [Concomitant]
     Indication: PRODUCT USED FOR UNKNOWN INDICATION
     Route: 048
  23. MULTI-VITAMIN [Concomitant]
     Indication: PRODUCT USED FOR UNKNOWN INDICATION
     Dosage: DAILY
  24. PERCOCET [Concomitant]
     Indication: PRODUCT USED FOR UNKNOWN INDICATION
  25. METHOTREXATE SODIUM [Concomitant]
     Indication: PRODUCT USED FOR UNKNOWN INDICATION
  26. AMITRIPTYLINE [Concomitant]
     Indication: PRODUCT USED FOR UNKNOWN INDICATION
     Dosage: AT BEDTIME
     Route: 048
  27. GABAPENTIN [Concomitant]
     Indication: PRODUCT USED FOR UNKNOWN INDICATION
     Route: 048
  28. LIDOCAINE [Concomitant]
     Indication: PRODUCT USED FOR UNKNOWN INDICATION
     Dosage: 700MG/PATCH TO L UPPER NECK UP TO 12H
  29. MORPHINE [Concomitant]
     Indication: PRODUCT USED FOR UNKNOWN INDICATION
     Dosage: 1-2 TAB Q 6-8 HOURS
     Route: 048
  30. TADALAFIL [Concomitant]
     Indication: ERECTILE DYSFUNCTION
     Dosage: MAX 1 PER DAY
     Route: 048
  31. VALACYCLOVIR [Concomitant]
     Indication: PRODUCT USED FOR UNKNOWN INDICATION

REACTIONS (36)
  - ARTHRALGIA [None]
  - ASTHENIA [None]
  - BACK PAIN [None]
  - CENTRAL NERVOUS SYSTEM LESION [None]
  - CHILLS [None]
  - COUGH [None]
  - DRUG DEPENDENCE [None]
  - ERYTHEMA [None]
  - FATIGUE [None]
  - HEADACHE [None]
  - HERPES ZOSTER [None]
  - HERPES ZOSTER DISSEMINATED [None]
  - HYPOAESTHESIA [None]
  - IMMUNOSUPPRESSION [None]
  - MALAISE [None]
  - MUSCULOSKELETAL STIFFNESS [None]
  - NECK PAIN [None]
  - NIGHT SWEATS [None]
  - NUCLEAR MAGNETIC RESONANCE IMAGING BRAIN ABNORMAL [None]
  - PAIN IN EXTREMITY [None]
  - PARAESTHESIA [None]
  - PLEOCYTOSIS [None]
  - POST HERPETIC NEURALGIA [None]
  - PYREXIA [None]
  - RASH [None]
  - RASH ERYTHEMATOUS [None]
  - RASH MACULAR [None]
  - RASH PAPULOSQUAMOUS [None]
  - RASH PUSTULAR [None]
  - RHEUMATOID ARTHRITIS [None]
  - SEROCONVERSION TEST POSITIVE [None]
  - SKIN LESION [None]
  - SKIN OEDEMA [None]
  - TOXOPLASMOSIS [None]
  - VIRAL INFECTION [None]
  - VOMITING [None]
